FAERS Safety Report 7211718-X (Version None)
Quarter: 2011Q1

REPORT INFORMATION
  Report Type: 
  Country: None (occurrence: None)
  Receive Date: 20110105
  Receipt Date: 20101230
  Transmission Date: 20110831
  Serious: Yes (Hospitalization)
  Sender: FDA-Public Use
  Company Number: FR-PFIZER INC-2010181574

PATIENT
  Age: 62 Year
  Sex: Male

DRUGS (10)
  1. ASPIRIN [Concomitant]
     Dosage: 1 DF, 1X/DAY
  2. RIVOTRIL [Concomitant]
     Dosage: UNK
  3. ZYVOX [Suspect]
     Indication: SEPSIS
     Dosage: 600 MG, 2X/DAY
     Route: 048
     Dates: start: 20101001, end: 20101007
  4. ZYLORIC ^FAES^ [Concomitant]
  5. GENTAMICIN [Concomitant]
     Indication: SEPSIS
     Dosage: UNK
     Dates: start: 20100926, end: 20101001
  6. ATENOLOL [Concomitant]
  7. PARACETAMOL [Concomitant]
     Dosage: UNK
     Dates: end: 20101007
  8. NEXIUM [Concomitant]
  9. CLAFORAN [Concomitant]
     Indication: SEPSIS
     Dosage: UNK
     Dates: start: 20100926, end: 20101001
  10. TAHOR [Concomitant]

REACTIONS (1)
  - CYTOLYTIC HEPATITIS [None]
